FAERS Safety Report 17263238 (Version 2)
Quarter: 2021Q3

REPORT INFORMATION
  Report Type: Spontaneous
  Country: IN (occurrence: IN)
  Receive Date: 20200113
  Receipt Date: 20210727
  Transmission Date: 20211014
  Serious: Yes (Death, Life-Threatening, Other)
  Sender: FDA-Public Use
  Company Number: IN-AMGEN-INDSP2020003647

PATIENT

DRUGS (8)
  1. CARFILZOMIB [Suspect]
     Active Substance: CARFILZOMIB
     Dosage: UNK/
     Route: 065
     Dates: start: 20200531
  2. POMALIDOMIDE [Concomitant]
     Active Substance: POMALIDOMIDE
     Indication: PLASMA CELL MYELOMA
     Dosage: UNK
     Route: 065
     Dates: start: 201708, end: 201810
  3. DEXAMETHASONE. [Concomitant]
     Active Substance: DEXAMETHASONE
     Indication: PLASMA CELL MYELOMA
     Dosage: UNK
     Route: 065
     Dates: start: 201708, end: 201810
  4. CARFILZOMIB [Suspect]
     Active Substance: CARFILZOMIB
     Indication: PLASMA CELL MYELOMA
     Dosage: UNK /
     Route: 065
     Dates: start: 20170801, end: 201810
  5. CARFILZOMIB [Suspect]
     Active Substance: CARFILZOMIB
     Dosage: 20 MILLIGRAM/SQ. METER ON DAY 1?2
     Route: 042
  6. CARFILZOMIB [Suspect]
     Active Substance: CARFILZOMIB
     Dosage: 27 MILLIGRAM/SQ. METER/FROM WEEK 2 (CYCLE 1 AND 2)
     Route: 042
  7. CARFILZOMIB [Suspect]
     Active Substance: CARFILZOMIB
     Dosage: 36 QWK / DOSE MODIFICATION AS PER TOLERABILITY
     Route: 042
  8. CARFILZOMIB [Suspect]
     Active Substance: CARFILZOMIB
     Dosage: 20 MILLIGRAM/SQ. METER / DAY I (DAY 1?2 IN CYCLE 1 ONLY), DAY 8 AND DAY 15 OF EACH CYCLE
     Route: 042

REACTIONS (29)
  - Neuropathy peripheral [Unknown]
  - Therapeutic product effect incomplete [Unknown]
  - H1N1 influenza [Unknown]
  - Plasma cell myeloma recurrent [Fatal]
  - Fatigue [Unknown]
  - Urinary tract infection [Unknown]
  - Febrile neutropenia [Unknown]
  - Cardiac failure congestive [Unknown]
  - Systemic mycosis [Unknown]
  - Bacterial infection [Unknown]
  - Anaemia [Unknown]
  - Off label use [Unknown]
  - Upper respiratory tract infection [Unknown]
  - Neutropenia [Unknown]
  - Thrombotic microangiopathy [Unknown]
  - Rhinovirus infection [Unknown]
  - Thrombocytopenia [Unknown]
  - Parainfluenzae virus infection [Unknown]
  - Drug ineffective [Unknown]
  - Hypertension [Unknown]
  - Coronavirus infection [Unknown]
  - Candida infection [Unknown]
  - Death [Fatal]
  - Sepsis [Fatal]
  - Renal failure [Unknown]
  - Cryptosporidiosis infection [Unknown]
  - Cardiotoxicity [Unknown]
  - Hyponatraemia [Unknown]
  - Otitis media acute [Unknown]
